FAERS Safety Report 8401168-2 (Version None)
Quarter: 2012Q2

REPORT INFORMATION
  Report Type: 
  Country: None (occurrence: None)
  Receive Date: 20120529
  Receipt Date: 20120529
  Transmission Date: 20120825
  Serious: Yes (Other)
  Sender: FDA-Public Use
  Company Number: None

PATIENT
  Age: 36 Year
  Sex: Female
  Weight: 58.514 kg

DRUGS (1)
  1. LAMOTRIGINE [Suspect]
     Indication: BIPOLAR DISORDER
     Dosage: 1 PILL TWICE A DAY PO
     Route: 048
     Dates: start: 20120523, end: 20120527

REACTIONS (10)
  - PRODUCT QUALITY ISSUE [None]
  - CRYING [None]
  - DEPRESSION [None]
  - MOOD ALTERED [None]
  - TREMOR [None]
  - POOR QUALITY SLEEP [None]
  - MALAISE [None]
  - BRUXISM [None]
  - PARAESTHESIA [None]
  - FEELING ABNORMAL [None]
